FAERS Safety Report 9271042 (Version 1)
Quarter: 2013Q2

REPORT INFORMATION
  Report Type: Report from Study
  Country: US (occurrence: US)
  Receive Date: 20130506
  Receipt Date: 20130506
  Transmission Date: 20140414
  Serious: Yes (Other)
  Sender: FDA-Public Use
  Company Number: US-JNJFOC-20130415497

PATIENT
  Age: 24 Year
  Sex: Female
  Weight: 75.3 kg

DRUGS (5)
  1. STELARA [Suspect]
     Indication: PSORIASIS
     Route: 058
     Dates: start: 2011
  2. STELARA [Suspect]
     Indication: PSORIASIS
     Route: 058
     Dates: start: 20130410
  3. DEPO PROVERA [Concomitant]
     Indication: CONTRACEPTION
     Route: 058
     Dates: start: 2012
  4. LAMICTAL [Concomitant]
     Indication: CONVULSION
  5. KEPPRA [Concomitant]
     Indication: CONVULSION

REACTIONS (4)
  - Abnormal loss of weight [Not Recovered/Not Resolved]
  - Fatigue [Not Recovered/Not Resolved]
  - Diarrhoea [Not Recovered/Not Resolved]
  - Dizziness [Recovered/Resolved]
